FAERS Safety Report 9993137 (Version 1)
Quarter: 2014Q1

REPORT INFORMATION
  Report Type: Spontaneous
  Country: SE (occurrence: SE)
  Receive Date: 20140310
  Receipt Date: 20140310
  Transmission Date: 20141002
  Serious: Yes (Hospitalization)
  Sender: FDA-Public Use
  Company Number: PHHY2014SE028117

PATIENT
  Age: 45 Year
  Sex: Male

DRUGS (2)
  1. RITALIN [Suspect]
     Dosage: UNK UKN, UNK
  2. STESOLID [Suspect]
     Dosage: UNK UKN, UNK

REACTIONS (1)
  - Toxicity to various agents [Recovered/Resolved]
